FAERS Safety Report 8557177-6 (Version None)
Quarter: 2012Q3

REPORT INFORMATION
  Report Type: 
  Country: None (occurrence: None)
  Receive Date: 20120801
  Receipt Date: 20120720
  Transmission Date: 20120928
  Serious: Yes (Other)
  Sender: FDA-Public Use
  Company Number: PHHY2012CH065076

PATIENT
  Sex: Male

DRUGS (2)
  1. ILARIS [Suspect]
     Indication: CHRONIC INFANTILE NEUROLOGICAL CUTANEOUS AND ARTICULAR SYNDROME
  2. ILARIS [Suspect]
     Indication: MUCKLE-WELLS SYNDROME

REACTIONS (2)
  - URINARY TRACT INFLAMMATION [None]
  - CYSTITIS [None]
